FAERS Safety Report 19223029 (Version 1)
Quarter: 2021Q2

REPORT INFORMATION
  Report Type: Spontaneous
  Country: CN (occurrence: CN)
  Receive Date: 20210505
  Receipt Date: 20210505
  Transmission Date: 20210717
  Serious: Yes (Other)
  Sender: FDA-Public Use
  Company Number: CN-ELI_LILLY_AND_COMPANY-CN202104011479

PATIENT
  Age: 51 Year
  Sex: Male

DRUGS (1)
  1. DULAGLUTIDE 1.5MG [Suspect]
     Active Substance: DULAGLUTIDE
     Indication: BLOOD GLUCOSE INCREASED
     Dosage: 1.5 MG, WEEKLY (1/W)
     Route: 058
     Dates: start: 20210419, end: 20210419

REACTIONS (4)
  - Dry mouth [Recovering/Resolving]
  - Vomiting [Recovering/Resolving]
  - Muscular weakness [Recovering/Resolving]
  - Nausea [Recovering/Resolving]

NARRATIVE: CASE EVENT DATE: 20210420
